FAERS Safety Report 9449009 (Version 1)
Quarter: 2013Q3

REPORT INFORMATION
  Report Type: Report from Study
  Country: US (occurrence: US)
  Receive Date: 20130808
  Receipt Date: 20130808
  Transmission Date: 20140515
  Serious: Yes (Other)
  Sender: FDA-Public Use
  Company Number: PHHY2013US084049

PATIENT
  Age: 60 Year
  Sex: Male

DRUGS (14)
  1. LUCENTIS [Suspect]
     Indication: MACULAR OEDEMA
     Dosage: UNK UKN, UNK
     Route: 031
  2. LUCENTIS [Suspect]
     Indication: RETINAL VEIN OCCLUSION
     Dosage: UNK UKN, UNK
     Route: 031
     Dates: start: 20130425
  3. AVASTIN [Suspect]
     Indication: MACULAR OEDEMA
     Dosage: UNK
     Route: 031
  4. AVASTIN [Suspect]
     Indication: OFF LABEL USE
     Dosage: UNK
     Route: 031
  5. AVASTIN [Suspect]
     Dosage: UNK
     Route: 031
  6. AVASTIN [Suspect]
     Dosage: UNK
     Route: 031
     Dates: start: 20121218
  7. NAPROXEN [Concomitant]
     Dosage: UNK
  8. LISINOPRIL [Concomitant]
     Dosage: UNK UKN, UNK
  9. METFORMIN [Concomitant]
     Dosage: UNK UKN, UNK
  10. VISINE [Concomitant]
     Dosage: UNK UKN, PRN
  11. TROPICAMIDE [Concomitant]
     Dosage: 1 %, UNK
  12. PROPARACAINE [Concomitant]
     Dosage: 0.5 %, UNK
  13. PHENYLEPHRINE [Concomitant]
     Dosage: 10 %, UNK
  14. BETADINE [Concomitant]
     Dosage: UNK UKN, UNK

REACTIONS (13)
  - Cystoid macular oedema [Not Recovered/Not Resolved]
  - Retinitis [Not Recovered/Not Resolved]
  - Retinal cyst [Unknown]
  - Pyrexia [Unknown]
  - Weight decreased [Unknown]
  - Deafness [Unknown]
  - Polyuria [Unknown]
  - Dysuria [Unknown]
  - Myalgia [Unknown]
  - Retinal degeneration [Unknown]
  - Vision blurred [Unknown]
  - Cataract [Unknown]
  - Visual acuity reduced [Not Recovered/Not Resolved]
